FAERS Safety Report 10608932 (Version 2)
Quarter: 2014Q4

REPORT INFORMATION
  Report Type: Spontaneous
  Country: US (occurrence: US)
  Receive Date: 20141125
  Receipt Date: 20141125
  Transmission Date: 20150529
  Serious: Yes (Other)
  Sender: FDA-Public Use
  Company Number: US-CELGENE-163-50794-14081136

PATIENT

DRUGS (4)
  1. VIDAZA [Suspect]
     Active Substance: AZACITIDINE
     Indication: ACUTE MYELOID LEUKAEMIA
     Route: 065
  2. VIDAZA [Suspect]
     Active Substance: AZACITIDINE
     Indication: MYELODYSPLASTIC SYNDROME
     Route: 065
  3. MLN4924 [Suspect]
     Active Substance: PEVONEDISTAT
     Indication: MYELODYSPLASTIC SYNDROME
     Route: 041
     Dates: start: 20140530
  4. MLN4924 [Suspect]
     Active Substance: PEVONEDISTAT
     Indication: ACUTE MYELOID LEUKAEMIA
     Route: 041
     Dates: start: 20140530

REACTIONS (8)
  - Anaemia [Unknown]
  - Aspartate aminotransferase increased [Unknown]
  - Thrombocytopenia [Unknown]
  - Febrile neutropenia [Unknown]
  - Constipation [Unknown]
  - Transaminases increased [Unknown]
  - Decreased appetite [Unknown]
  - Blood bilirubin increased [Unknown]
